FAERS Safety Report 8975093 (Version 1)
Quarter: 2012Q4

REPORT INFORMATION
  Report Type: 
  Country: US (occurrence: US)
  Receive Date: 20121219
  Receipt Date: 20121219
  Transmission Date: 20130627
  Serious: Yes (Disabling)
  Sender: FDA-Public Use
  Company Number: CHPA2012US025500

PATIENT
  Age: 81 Year
  Sex: Female

DRUGS (1)
  1. VOLTAREN GEL [Suspect]
     Indication: OSTEOARTHRITIS
     Dosage: 4 g, QID
     Route: 061
     Dates: start: 20121216, end: 20121217

REACTIONS (3)
  - Abasia [Unknown]
  - Mobility decreased [Unknown]
  - Drug administered at inappropriate site [Unknown]
